FAERS Safety Report 6590976-9 (Version None)
Quarter: 2010Q1

REPORT INFORMATION
  Report Type: 
  Country: None (occurrence: None)
  Receive Date: 20100219
  Receipt Date: 20100204
  Transmission Date: 20100710
  Serious: Yes (Death, Life-Threatening, Other)
  Sender: FDA-Public Use
  Company Number: JP-NOVOPROD-304070

PATIENT
  Sex: Male

DRUGS (3)
  1. NOVOSEVEN [Suspect]
     Indication: PLEURAL HAEMORRHAGE
     Dosage: 0.2 MG, QD
     Route: 042
     Dates: start: 20081106, end: 20081106
  2. TRANSAMIN [Concomitant]
     Dosage: 5 ML, QD
     Route: 042
     Dates: start: 20081106, end: 20081106
  3. KAYTWO N [Concomitant]
     Dosage: 5 MG, QD
     Route: 042
     Dates: start: 20081106, end: 20081106

REACTIONS (2)
  - DEATH NEONATAL [None]
  - DRUG INEFFECTIVE [None]
